FAERS Safety Report 5459392-7 (Version None)
Quarter: 2007Q3

REPORT INFORMATION
  Report Type: 
  Country: None (occurrence: None)
  Receive Date: 20070919
  Receipt Date: 20070911
  Transmission Date: 20080115
  Serious: Yes (Other)
  Sender: FDA-Public Use
  Company Number: US-ELI_LILLY_AND_COMPANY-US200709002202

PATIENT
  Sex: Female

DRUGS (6)
  1. FORTEO [Suspect]
     Indication: OSTEOPOROSIS
     Dosage: UNK, UNK
     Dates: start: 20070101, end: 20070101
  2. FORTEO [Suspect]
     Dates: start: 20070801
  3. PRILOSEC [Concomitant]
     Dosage: UNK, DAILY (1/D)
     Dates: end: 20070911
  4. PRILOSEC [Concomitant]
     Dosage: UNK, 2/D
     Dates: start: 20070911
  5. TOPROL-XL [Concomitant]
     Dosage: UNK, DAILY (1/D)
  6. PLAVIX [Concomitant]
     Dosage: UNK, DAILY (1/D)

REACTIONS (3)
  - CARDIAC DISORDER [None]
  - CAROTID ARTERY OCCLUSION [None]
  - STOMACH DISCOMFORT [None]
